FAERS Safety Report 20699839 (Version 1)
Quarter: 2022Q2

REPORT INFORMATION
  Report Type: Spontaneous
  Country: PL (occurrence: PL)
  Receive Date: 20220412
  Receipt Date: 20220412
  Transmission Date: 20220721
  Serious: Yes (Other)
  Sender: FDA-Public Use
  Company Number: PL-Accord-259698

PATIENT
  Age: 74 Year
  Sex: Female
  Weight: 85 kg

DRUGS (2)
  1. GEMCITABINE [Suspect]
     Active Substance: GEMCITABINE
     Indication: Pancreatic carcinoma
  2. CISPLATIN [Suspect]
     Active Substance: CISPLATIN
     Indication: Pancreatic carcinoma

REACTIONS (8)
  - Nausea [Unknown]
  - Vomiting [Unknown]
  - Abdominal pain [Unknown]
  - Dyspnoea [Unknown]
  - Weight decreased [Unknown]
  - Pulmonary embolism [Unknown]
  - Food refusal [Unknown]
  - Off label use [Unknown]

NARRATIVE: CASE EVENT DATE: 20210501
